FAERS Safety Report 13954634 (Version 1)
Quarter: 2017Q3

REPORT INFORMATION
  Report Type: Spontaneous
  Country: US (occurrence: US)
  Receive Date: 20170910
  Receipt Date: 20170910
  Transmission Date: 20171128
  Serious: Yes (Hospitalization)
  Sender: FDA-Public Use
  Company Number: None

PATIENT
  Age: 34 Year
  Sex: Female
  Weight: 114.3 kg

DRUGS (5)
  1. LYRICA [Suspect]
     Active Substance: PREGABALIN
     Indication: NEURALGIA
     Dosage: ?          QUANTITY:30 CAPSULE(S);?DAILY ORAL
     Route: 048
     Dates: start: 20170207, end: 20170814
  2. HYDROCODONE [Concomitant]
     Active Substance: HYDROCODONE
  3. INSULIN [Concomitant]
     Active Substance: INSULIN NOS
  4. FENAFYBRATE [Concomitant]
  5. LISONOPRIL [Concomitant]

REACTIONS (1)
  - Seizure [None]

NARRATIVE: CASE EVENT DATE: 20170612
